FAERS Safety Report 8776173 (Version 1)
Quarter: 2012Q4

REPORT INFORMATION
  Report Type: 
  Country: US (occurrence: US)
  Receive Date: 20120910
  Receipt Date: 20120910
  Transmission Date: 20130627
  Serious: No
  Sender: FDA-Public Use
  Company Number: US-B.I. PHARMACEUTICALS,INC./RIDGEFIELD-2012-BP-21546BP

PATIENT
  Age: 50 Year
  Sex: Female
  Weight: 29 kg

DRUGS (3)
  1. SPIRIVA [Suspect]
     Indication: CHRONIC OBSTRUCTIVE PULMONARY DISEASE
     Dosage: 18 mcg
     Route: 055
     Dates: start: 201203
  2. SPIRIVA [Suspect]
     Dosage: 36 mcg
     Route: 055
     Dates: start: 20120904, end: 20120904
  3. DULERA [Concomitant]
     Indication: CHRONIC OBSTRUCTIVE PULMONARY DISEASE
     Dosage: 4 puf

REACTIONS (2)
  - Incorrect dose administered [Recovered/Resolved]
  - Product quality issue [Recovered/Resolved]
